FAERS Safety Report 25252432 (Version 1)
Quarter: 2025Q2

REPORT INFORMATION
  Report Type: Spontaneous
  Country: US (occurrence: US)
  Receive Date: 20250429
  Receipt Date: 20250429
  Transmission Date: 20250716
  Serious: No
  Sender: ELI LILLY AND COMPANY
  Company Number: US-ELI_LILLY_AND_COMPANY-US202504020377

PATIENT
  Age: 65 Year
  Sex: Female

DRUGS (2)
  1. ZEPBOUND [Suspect]
     Active Substance: TIRZEPATIDE
     Indication: Weight control
     Route: 058
     Dates: start: 202504
  2. NARDIL [Suspect]
     Active Substance: PHENELZINE SULFATE
     Indication: Product used for unknown indication
     Route: 065

REACTIONS (3)
  - Laryngitis [Unknown]
  - Weight increased [Unknown]
  - Hunger [Unknown]
